FAERS Safety Report 17561252 (Version 2)
Quarter: 2020Q2

REPORT INFORMATION
  Report Type: Report from Study
  Country: None (occurrence: DE)
  Receive Date: 20200319
  Receipt Date: 20200414
  Transmission Date: 20200713
  Serious: Yes (Other)
  Sender: FDA-Public Use
  Company Number: DE-ABBVIE-20K-062-3327391-00

PATIENT
  Age: 31 Year
  Sex: Female
  Weight: 57 kg

DRUGS (25)
  1. VITAMIN C [Concomitant]
     Active Substance: ASCORBIC ACID
     Indication: VITAMIN SUPPLEMENTATION
  2. FERRO-SANOL DUODENAL [Concomitant]
     Active Substance: FERROUS GLYCINE SULFATE
     Indication: MINERAL SUPPLEMENTATION
  3. VITAMIN C [Concomitant]
     Active Substance: ASCORBIC ACID
     Indication: VITAMIN SUPPLEMENTATION
  4. DECORTIN [Concomitant]
     Active Substance: PREDNISONE
     Indication: RHEUMATOID ARTHRITIS
     Route: 048
     Dates: start: 2019
  5. PHOSETAMIN [Concomitant]
     Active Substance: PHOSPHORYLCOLAMINE
     Indication: NUTRITIONAL SUPPLEMENTATION
  6. UNIZINK [Concomitant]
     Active Substance: AVOBENZONE\HOMOSALATE\OCTISALATE
     Indication: MINERAL SUPPLEMENTATION
  7. COENZYM Q10 [Concomitant]
     Indication: ENZYME SUPPLEMENTATION
  8. COENZYM Q10 [Concomitant]
     Indication: ENZYME SUPPLEMENTATION
  9. B-KOMPLEX [Concomitant]
     Active Substance: CALCIUM PANTOTHENATE\NIACINAMIDE\PYRIDOXINE HYDROCHLORIDE\RIBOFLAVIN\THIAMINE HYDROCHLORIDE
     Indication: MINERAL SUPPLEMENTATION
  10. COENZYM Q10 [Concomitant]
     Indication: ENZYME SUPPLEMENTATION
  11. FERRO-SANOL DUODENAL [Concomitant]
     Active Substance: FERROUS GLYCINE SULFATE
     Indication: VITAMIN SUPPLEMENTATION
  12. PHOSETAMIN [Concomitant]
     Active Substance: PHOSPHORYLCOLAMINE
     Indication: MINERAL SUPPLEMENTATION
  13. SELEN [Concomitant]
     Active Substance: SELENIUM
     Indication: VITAMIN SUPPLEMENTATION
  14. UNIZINK [Concomitant]
     Active Substance: AVOBENZONE\HOMOSALATE\OCTISALATE
     Indication: NUTRITIONAL SUPPLEMENTATION
  15. LODOTRA [Concomitant]
     Active Substance: PREDNISONE
     Indication: RHEUMATOID ARTHRITIS
     Route: 048
     Dates: start: 20200219
  16. DEKRISTOL [Concomitant]
     Active Substance: CHOLECALCIFEROL
     Indication: RHEUMATOID ARTHRITIS
     Route: 048
     Dates: start: 2014
  17. PHOSETAMIN [Concomitant]
     Active Substance: PHOSPHORYLCOLAMINE
     Indication: VITAMIN SUPPLEMENTATION
  18. SELEN [Concomitant]
     Active Substance: SELENIUM
     Indication: MINERAL SUPPLEMENTATION
  19. B-KOMPLEX [Concomitant]
     Active Substance: CALCIUM PANTOTHENATE\NIACINAMIDE\PYRIDOXINE HYDROCHLORIDE\RIBOFLAVIN\THIAMINE HYDROCHLORIDE
     Indication: VITAMIN SUPPLEMENTATION
     Dates: start: 20200101
  20. B-KOMPLEX [Concomitant]
     Active Substance: CALCIUM PANTOTHENATE\NIACINAMIDE\PYRIDOXINE HYDROCHLORIDE\RIBOFLAVIN\THIAMINE HYDROCHLORIDE
     Indication: VITAMIN SUPPLEMENTATION
  21. SELEN [Concomitant]
     Active Substance: SELENIUM
     Indication: NUTRITIONAL SUPPLEMENTATION
  22. VITAMIN C [Concomitant]
     Active Substance: ASCORBIC ACID
     Indication: VITAMIN SUPPLEMENTATION
     Route: 048
     Dates: start: 20200101
  23. FERRO-SANOL DUODENAL [Concomitant]
     Active Substance: FERROUS GLYCINE SULFATE
     Indication: NUTRITIONAL SUPPLEMENTATION
  24. RINVOQ [Suspect]
     Active Substance: UPADACITINIB
     Indication: RHEUMATOID ARTHRITIS
     Route: 048
     Dates: start: 20200303, end: 20200308
  25. UNIZINK [Concomitant]
     Active Substance: AVOBENZONE\HOMOSALATE\OCTISALATE
     Indication: VITAMIN SUPPLEMENTATION

REACTIONS (6)
  - Migraine [Recovered/Resolved]
  - Back pain [Unknown]
  - Unevaluable event [Recovered/Resolved]
  - Oedema [Unknown]
  - Pulmonary oedema [Recovered/Resolved]
  - Dizziness [Recovered/Resolved]

NARRATIVE: CASE EVENT DATE: 202003
